FAERS Safety Report 6579950-6 (Version None)
Quarter: 2010Q1

REPORT INFORMATION
  Report Type: 
  Country: None (occurrence: None)
  Receive Date: 20100212
  Receipt Date: 20100201
  Transmission Date: 20100710
  Serious: Yes (Other)
  Sender: FDA-Public Use
  Company Number: AU-PFIZER INC-2010013941

PATIENT
  Age: 25 Year
  Sex: Male

DRUGS (3)
  1. VORICONAZOLE [Suspect]
     Indication: FUNGAL INFECTION
     Dosage: UNK
     Route: 048
     Dates: start: 20070801
  2. POSACONAZOLE [Suspect]
     Indication: FUNGAL INFECTION
     Dosage: UNK
     Dates: start: 20090701, end: 20091001
  3. POSACONAZOLE [Suspect]
     Dosage: UNK
     Dates: start: 20091201, end: 20100101

REACTIONS (6)
  - EPHELIDES [None]
  - ERYTHEMA [None]
  - PHOTOSENSITIVITY REACTION [None]
  - SKIN DISORDER [None]
  - SQUAMOUS CELL CARCINOMA [None]
  - SUNBURN [None]
